FAERS Safety Report 5418355-8 (Version None)
Quarter: 2007Q3

REPORT INFORMATION
  Report Type: 
  Country: None (occurrence: None)
  Receive Date: 20070817
  Receipt Date: 20070809
  Transmission Date: 20080115
  Serious: Yes (Hospitalization, Other)
  Sender: FDA-Public Use
  Company Number: US-JNJFOC-20070802503

PATIENT
  Sex: Female
  Weight: 67.59 kg

DRUGS (3)
  1. CONCERTA [Suspect]
     Indication: ATTENTION DEFICIT/HYPERACTIVITY DISORDER
     Route: 048
  2. KLONOPIN [Concomitant]
     Indication: ANXIETY
  3. NEURONTIN [Concomitant]
     Indication: PAIN

REACTIONS (1)
  - INTESTINAL OBSTRUCTION [None]
